FAERS Safety Report 11849773 (Version 1)
Quarter: 2015Q4

REPORT INFORMATION
  Report Type: Spontaneous
  Country: PT (occurrence: PT)
  Receive Date: 20151218
  Receipt Date: 20151218
  Transmission Date: 20160305
  Serious: Yes (Other)
  Sender: FDA-Public Use
  Company Number: PT-FRESENIUS KABI-FK201506641

PATIENT
  Age: 58 Year
  Sex: Male
  Weight: 60 kg

DRUGS (23)
  1. PENTOXIFYLLINE. [Concomitant]
     Active Substance: PENTOXIFYLLINE
     Route: 048
  2. GRANISETRON [Concomitant]
     Active Substance: GRANISETRON
  3. RANITIDINE [Concomitant]
     Active Substance: RANITIDINE\RANITIDINE HYDROCHLORIDE
     Route: 048
  4. PANTOPRAZOLE [Concomitant]
     Active Substance: PANTOPRAZOLE SODIUM
     Route: 048
  5. NOVOPLATINUM [Suspect]
     Active Substance: CARBOPLATIN
     Indication: OESOPHAGEAL ADENOCARCINOMA
     Route: 042
     Dates: start: 20151020
  6. METFORMIN [Concomitant]
     Active Substance: METFORMIN HYDROCHLORIDE
     Route: 048
  7. CLEMASTINE [Concomitant]
     Active Substance: CLEMASTINE
  8. SPIRONOLACTONE. [Concomitant]
     Active Substance: SPIRONOLACTONE
     Route: 048
  9. SUCRALFATE. [Concomitant]
     Active Substance: SUCRALFATE
     Route: 048
  10. LISINOPRIL. [Concomitant]
     Active Substance: LISINOPRIL
     Route: 048
  11. TRAMADOL. [Concomitant]
     Active Substance: TRAMADOL
     Route: 048
  12. RANITIDINE [Concomitant]
     Active Substance: RANITIDINE\RANITIDINE HYDROCHLORIDE
  13. BRISOMAX DISCUSS [Concomitant]
     Route: 055
  14. METOCLOPRAMIDE. [Concomitant]
     Active Substance: METOCLOPRAMIDE
  15. PACLITAXEL 6MG/ML CONCENTRATE FOR SOLUTION FOR INFUSION [Suspect]
     Active Substance: PACLITAXEL
     Indication: OESOPHAGEAL ADENOCARCINOMA
     Route: 042
     Dates: start: 20151020
  16. IPRATROPIUM BROMIDE. [Concomitant]
     Active Substance: IPRATROPIUM BROMIDE
     Route: 055
  17. THIAMINE. [Concomitant]
     Active Substance: THIAMINE
  18. BISOPROLOL [Concomitant]
     Active Substance: BISOPROLOL
     Route: 048
  19. TIOTROPIUM BROMIDE [Concomitant]
     Active Substance: TIOTROPIUM BROMIDE
     Route: 055
  20. VITAMIN B12 [Concomitant]
     Active Substance: CYANOCOBALAMIN
  21. FOLIC ACID. [Concomitant]
     Active Substance: FOLIC ACID
     Route: 048
  22. DEXAMETHASONE. [Concomitant]
     Active Substance: DEXAMETHASONE
  23. ACETYLSALICYLIC ACID [Concomitant]
     Active Substance: ASPIRIN
     Route: 048

REACTIONS (2)
  - Leg amputation [None]
  - Peripheral ischaemia [Recovered/Resolved with Sequelae]

NARRATIVE: CASE EVENT DATE: 20151023
